FAERS Safety Report 10860729 (Version 1)
Quarter: 2015Q1

REPORT INFORMATION
  Report Type: Report from Study
  Country: BR (occurrence: BR)
  Receive Date: 20150224
  Receipt Date: 20150224
  Transmission Date: 20150721
  Serious: Yes (Death, Hospitalization, Other)
  Sender: FDA-Public Use
  Company Number: PHHY2015BR021463

PATIENT
  Age: 57 Year
  Sex: Male
  Weight: 55 kg

DRUGS (4)
  1. MIFLONIDE [Suspect]
     Active Substance: BUDESONIDE
     Indication: CHRONIC OBSTRUCTIVE PULMONARY DISEASE
     Dosage: 2 DF, QD
     Route: 055
     Dates: start: 201406
  2. ONBREZ BREEZHALER [Suspect]
     Active Substance: INDACATEROL
     Indication: CHRONIC OBSTRUCTIVE PULMONARY DISEASE
     Dosage: 1 DF, QD
     Route: 055
     Dates: start: 201406
  3. MIFLONIDE [Suspect]
     Active Substance: BUDESONIDE
     Indication: EMPHYSEMA
  4. ONBREZ BREEZHALER [Suspect]
     Active Substance: INDACATEROL
     Indication: EMPHYSEMA

REACTIONS (27)
  - Hepatic cirrhosis [Fatal]
  - Septic shock [Fatal]
  - Sepsis [Fatal]
  - Oxygen saturation decreased [Not Recovered/Not Resolved]
  - Nosocomial infection [Recovering/Resolving]
  - Lymphocyte count decreased [Not Recovered/Not Resolved]
  - Pneumonia [Not Recovered/Not Resolved]
  - Nausea [Recovering/Resolving]
  - Haemoglobin decreased [Recovering/Resolving]
  - Hypotension [Not Recovered/Not Resolved]
  - Coagulopathy [Not Recovered/Not Resolved]
  - Fall [Unknown]
  - Duodenal ulcer haemorrhage [Not Recovered/Not Resolved]
  - Abdominal pain [Recovering/Resolving]
  - Internal haemorrhage [Not Recovered/Not Resolved]
  - Pyrexia [Not Recovered/Not Resolved]
  - Hepatic failure [Fatal]
  - Joint injury [Not Recovered/Not Resolved]
  - Hypovolaemia [Fatal]
  - Anaemia [Not Recovered/Not Resolved]
  - Hepatorenal syndrome [Recovering/Resolving]
  - Blood pressure abnormal [Not Recovered/Not Resolved]
  - Lung infection [Not Recovered/Not Resolved]
  - Concomitant disease progression [Fatal]
  - Renal failure [Recovering/Resolving]
  - Epistaxis [Recovered/Resolved]
  - Fluid retention [Recovering/Resolving]

NARRATIVE: CASE EVENT DATE: 201410
